FAERS Safety Report 7440847-0 (Version None)
Quarter: 2011Q2

REPORT INFORMATION
  Report Type: 
  Country: None (occurrence: None)
  Receive Date: 20110427
  Receipt Date: 20110420
  Transmission Date: 20111010
  Serious: Yes (Other)
  Sender: FDA-Public Use
  Company Number: AU-PFIZER INC-2011085868

PATIENT
  Sex: Female

DRUGS (5)
  1. ACETYLSALICYLIC ACID [Concomitant]
     Dosage: HALF A TABLET
  2. VALIUM [Suspect]
     Dosage: 1 MG, UNK
  3. DILANTIN [Suspect]
     Indication: PROPHYLAXIS
     Dosage: 100 MG, 3X/DAY
     Dates: end: 20090801
  4. EPILIM [Suspect]
     Indication: PROPHYLAXIS
     Dosage: UNK
  5. MONOPRIL [Concomitant]

REACTIONS (11)
  - INSOMNIA [None]
  - DRUG LEVEL ABOVE THERAPEUTIC [None]
  - ALOPECIA [None]
  - FEELING ABNORMAL [None]
  - NERVE INJURY [None]
  - APHAGIA [None]
  - APHASIA [None]
  - ACTIVITIES OF DAILY LIVING IMPAIRED [None]
  - WEIGHT DECREASED [None]
  - DEPRESSION [None]
  - HYPOAESTHESIA [None]
